FAERS Safety Report 8046934-0 (Version None)
Quarter: 2012Q1

REPORT INFORMATION
  Report Type: 
  Country: None (occurrence: None)
  Receive Date: 20120116
  Receipt Date: 20120109
  Transmission Date: 20120608
  Serious: Yes (Hospitalization)
  Sender: FDA-Public Use
  Company Number: US-GENZYME-THYM-1003071

PATIENT
  Sex: Male
  Weight: 96 kg

DRUGS (1)
  1. THYMOGLOBULIN [Suspect]
     Indication: NON-HODGKIN'S LYMPHOMA
     Dosage: 2.5 MG/KG, QD
     Route: 042
     Dates: start: 20111129, end: 20111201

REACTIONS (4)
  - TACHYCARDIA [None]
  - WEIGHT DECREASED [None]
  - CYTOMEGALOVIRUS TEST POSITIVE [None]
  - INFECTION [None]
